APPROVED DRUG PRODUCT: FLUPHENAZINE HYDROCHLORIDE
Active Ingredient: FLUPHENAZINE HYDROCHLORIDE
Strength: 5MG/ML
Dosage Form/Route: CONCENTRATE;ORAL
Application: A074725 | Product #001
Applicant: PHARMACEUTICAL ASSOCIATES INC
Approved: Sep 16, 1996 | RLD: No | RS: Yes | Type: RX